FAERS Safety Report 24389321 (Version 1)
Quarter: 2024Q4

REPORT INFORMATION
  Report Type: Spontaneous
  Country: US (occurrence: US)
  Receive Date: 20241003
  Receipt Date: 20241003
  Transmission Date: 20250115
  Serious: No
  Sender: JOHNSON AND JOHNSON
  Company Number: US-JNJFOC-20240939682

PATIENT
  Age: 36 Year
  Sex: Male
  Weight: 104.3 kg

DRUGS (2)
  1. REMICADE [Suspect]
     Active Substance: INFLIXIMAB
     Indication: Product used for unknown indication
     Route: 041
     Dates: start: 202408
  2. VIVITROL [Concomitant]
     Active Substance: NALTREXONE
     Indication: Drug dependence

REACTIONS (1)
  - Drug ineffective [Unknown]
